FAERS Safety Report 8872046 (Version 1)
Quarter: 2012Q4

REPORT INFORMATION
  Report Type: 
  Country: US (occurrence: US)
  Receive Date: 20121026
  Receipt Date: 20121026
  Transmission Date: 20130627
  Serious: No
  Sender: FDA-Public Use
  Company Number: US-AMGEN-USASP2012048828

PATIENT
  Sex: Male
  Weight: 97.96 kg

DRUGS (10)
  1. ENBREL [Suspect]
     Indication: PRODUCT USED FOR UNKNOWN INDICATION
     Dosage: 50 mg, qwk
     Route: 058
  2. NASONEX [Concomitant]
     Dosage: 50 mug, UNK
  3. LORAZEPAM [Concomitant]
     Dosage: 2 mg, UNK
  4. FEXOFENADINE [Concomitant]
     Dosage: 180 mg, UNK
  5. LEVOTHYROXIN [Concomitant]
     Dosage: 112 mug, UNK
  6. BUPROPION [Concomitant]
     Dosage: 150 mg, UNK
  7. MIRAPEX [Concomitant]
     Dosage: 0.5 mg, UNK
  8. BENICAR [Concomitant]
     Dosage: 40 mg, UNK
  9. LUNESTA [Concomitant]
     Dosage: 3 mg, UNK
  10. HYDROCODONE/HOMATROP [Concomitant]
     Dosage: UNK

REACTIONS (2)
  - Oropharyngeal pain [Unknown]
  - Sinus congestion [Unknown]
